FAERS Safety Report 19393143 (Version 1)
Quarter: 2021Q2

REPORT INFORMATION
  Report Type: Report from Study
  Country: None (occurrence: US)
  Receive Date: 20210609
  Receipt Date: 20210609
  Transmission Date: 20210717
  Serious: Yes (Other)
  Sender: FDA-Public Use
  Company Number: US-ABBVIE-21K-163-3925117-00

PATIENT
  Sex: Male

DRUGS (2)
  1. VENCLEXTA [Suspect]
     Active Substance: VENETOCLAX
     Dosage: DOUBLED UP A DOSE ONE DAY
     Route: 048
     Dates: start: 202105
  2. VENCLEXTA [Suspect]
     Active Substance: VENETOCLAX
     Indication: CHRONIC LYMPHOCYTIC LEUKAEMIA
     Route: 048
     Dates: start: 20210503, end: 202105

REACTIONS (7)
  - Laboratory test abnormal [Unknown]
  - Haemoglobin decreased [Unknown]
  - Platelet count increased [Unknown]
  - Neoplasm [Recovering/Resolving]
  - Haematocrit decreased [Unknown]
  - Cough [Unknown]
  - Extra dose administered [Unknown]

NARRATIVE: CASE EVENT DATE: 2021
